FAERS Safety Report 11290297 (Version 1)
Quarter: 2015Q3

REPORT INFORMATION
  Report Type: Spontaneous
  Country: CA (occurrence: CA)
  Receive Date: 20150722
  Receipt Date: 20150722
  Transmission Date: 20151125
  Serious: Yes (Death)
  Sender: FDA-Public Use
  Company Number: CA-ROCHE-1611262

PATIENT
  Age: 74 Year
  Sex: Male

DRUGS (2)
  1. TAXOTERE [Suspect]
     Active Substance: DOCETAXEL
     Indication: LUNG NEOPLASM MALIGNANT
     Route: 065
  2. AVASTIN [Suspect]
     Active Substance: BEVACIZUMAB
     Indication: LUNG NEOPLASM MALIGNANT
     Dosage: THERAPY DURATION: 547 DAYS
     Route: 042

REACTIONS (6)
  - Epistaxis [Fatal]
  - Nasopharyngitis [Fatal]
  - Cough [Fatal]
  - Fatigue [Fatal]
  - Hypotension [Fatal]
  - Oxygen saturation decreased [Fatal]
